FAERS Safety Report 8583973-5 (Version None)
Quarter: 2012Q3

REPORT INFORMATION
  Report Type: 
  Country: None (occurrence: None)
  Receive Date: 20120810
  Receipt Date: 20120710
  Transmission Date: 20120928
  Serious: No
  Sender: FDA-Public Use
  Company Number: US-009507513-1207USA002588

PATIENT

DRUGS (3)
  1. VICTRELIS [Suspect]
     Dosage: 200 MG, TID
     Route: 048
     Dates: start: 20120705
  2. PEGASYS [Suspect]
  3. REBETOL [Suspect]

REACTIONS (1)
  - ABDOMINAL DISCOMFORT [None]
